FAERS Safety Report 16973893 (Version 1)
Quarter: 2019Q4

REPORT INFORMATION
  Report Type: Spontaneous
  Country: BG (occurrence: BG)
  Receive Date: 20191030
  Receipt Date: 20191030
  Transmission Date: 20200122
  Serious: Yes (Other)
  Sender: FDA-Public Use
  Company Number: BG-AMGEN-BGRSP2019175957

PATIENT
  Age: 56 Year
  Sex: Female
  Weight: 78 kg

DRUGS (8)
  1. VECTIBIX [Suspect]
     Active Substance: PANITUMUMAB
     Dosage: 6 MILLIGRAM, Q2WK
     Route: 042
     Dates: start: 2019
  2. LEUCOVORINE [Concomitant]
     Active Substance: LEUCOVORIN
     Dosage: 400 MILLIGRAM/SQ. METER, Q2WK
     Route: 042
     Dates: start: 2019
  3. 5 FU [Concomitant]
     Active Substance: FLUOROURACIL
     Indication: COLORECTAL CANCER METASTATIC
     Dosage: 400 MG/M2 BOLUS ON DAY 1 AND 2400 MG/M2, Q2WK
     Route: 042
     Dates: start: 201904, end: 201909
  4. VECTIBIX [Suspect]
     Active Substance: PANITUMUMAB
     Indication: COLORECTAL CANCER METASTATIC
     Dosage: 6 MILLIGRAM, Q2WK
     Route: 042
     Dates: start: 201904, end: 201909
  5. IRINOTECAN [Concomitant]
     Active Substance: IRINOTECAN
     Dosage: 180 MILLIGRAM/SQ. METER, Q2WK
     Route: 042
     Dates: start: 2019
  6. 5 FU [Concomitant]
     Active Substance: FLUOROURACIL
     Dosage: 400 MG/M2 BOLUS ON DAY 1 AND 2400 MG/M2, Q2WK
     Route: 042
     Dates: start: 2019
  7. LEUCOVORINE [Concomitant]
     Active Substance: LEUCOVORIN
     Indication: COLORECTAL CANCER METASTATIC
     Dosage: 400 MILLIGRAM/SQ. METER, Q2WK
     Route: 042
     Dates: start: 201904, end: 201909
  8. IRINOTECAN [Concomitant]
     Active Substance: IRINOTECAN
     Indication: COLORECTAL CANCER METASTATIC
     Dosage: 180 MILLIGRAM/SQ. METER, Q2WK
     Route: 042
     Dates: start: 201904, end: 201909

REACTIONS (2)
  - Ulcer [Recovered/Resolved]
  - Rash [Recovered/Resolved]

NARRATIVE: CASE EVENT DATE: 201909
